FAERS Safety Report 4869912-9 (Version None)
Quarter: 2005Q4

REPORT INFORMATION
  Report Type: 
  Country: None (occurrence: None)
  Receive Date: 20051230
  Receipt Date: 20050914
  Transmission Date: 20060501
  Serious: Yes (Hospitalization, Other)
  Sender: FDA-Public Use
  Company Number: US-MERCK-0509USA02096

PATIENT
  Sex: Female
  Weight: 77 kg

DRUGS (18)
  1. VIOXX [Suspect]
     Indication: ARTHRITIS
     Route: 048
     Dates: start: 20000701, end: 20040601
  2. VIOXX [Suspect]
     Route: 048
     Dates: start: 20000701, end: 20040601
  3. VIOXX [Suspect]
     Route: 048
     Dates: start: 20000701, end: 20040601
  4. VIOXX [Suspect]
     Indication: PAIN
     Route: 048
     Dates: start: 20000701, end: 20040601
  5. VIOXX [Suspect]
     Route: 048
     Dates: start: 20000701, end: 20040601
  6. VIOXX [Suspect]
     Route: 048
     Dates: start: 20000701, end: 20040601
  7. CELEBREX [Concomitant]
     Indication: PAIN
     Route: 065
  8. ACETAMINOPHEN AND CODEINE [Concomitant]
     Route: 065
  9. RISPERDAL [Concomitant]
     Route: 065
  10. DOCUSATE SODIUM [Concomitant]
     Route: 065
  11. IBU-TAB [Concomitant]
     Route: 065
  12. ASPIRIN [Concomitant]
     Route: 065
  13. TEQUIN [Concomitant]
     Route: 065
  14. ZOLOFT [Concomitant]
     Indication: BULIMIA NERVOSA
     Route: 065
  15. CEPHALEXIN [Concomitant]
     Route: 065
  16. GEODON [Concomitant]
     Indication: ANXIETY DISORDER
     Route: 065
  17. PREVACID [Concomitant]
     Route: 065
  18. RANITIDINE [Concomitant]
     Route: 065

REACTIONS (9)
  - ABDOMINAL PAIN UPPER [None]
  - ADVERSE EVENT [None]
  - EMOTIONAL DISTRESS [None]
  - GASTROINTESTINAL DISORDER [None]
  - IRRITABLE BOWEL SYNDROME [None]
  - OVERDOSE [None]
  - PULMONARY EMBOLISM [None]
  - STOMACH DISCOMFORT [None]
  - THROMBOSIS [None]
